FAERS Safety Report 16063221 (Version 1)
Quarter: 2019Q1

REPORT INFORMATION
  Report Type: Spontaneous
  Country: US (occurrence: US)
  Receive Date: 20190312
  Receipt Date: 20190312
  Transmission Date: 20190418
  Serious: Yes (Other)
  Sender: FDA-Public Use
  Company Number: US-ASTRAZENECA-2019SE38207

PATIENT
  Age: 61 Year
  Sex: Female
  Weight: 56.7 kg

DRUGS (16)
  1. NEXIUM [Suspect]
     Active Substance: ESOMEPRAZOLE MAGNESIUM
     Indication: GASTROOESOPHAGEAL REFLUX DISEASE
     Route: 048
  2. MONTELUKAST [Concomitant]
     Active Substance: MONTELUKAST SODIUM
     Indication: ASTHMA
     Dosage: UNKNOWN
     Route: 065
  3. CELEBREX [Concomitant]
     Active Substance: CELECOXIB
     Dosage: UNKNOWN
     Route: 065
  4. AVASTIN INFUSION [Concomitant]
     Indication: NEOPLASM MALIGNANT
     Dosage: UNKNOWN
     Route: 065
  5. FLOVENT [Concomitant]
     Active Substance: FLUTICASONE PROPIONATE
     Indication: INFLUENZA
     Dosage: UNKNOWN
     Route: 065
  6. OCUVITE [Concomitant]
     Active Substance: VITAMINS
     Dosage: UNKNOWN
     Route: 065
  7. VENTOLIN [Concomitant]
     Active Substance: ALBUTEROL SULFATE
     Indication: INFLUENZA
     Route: 065
  8. GENERIC AMBIEN [Concomitant]
     Indication: SLEEP DISORDER
     Route: 048
  9. NEXIUM 24HR [Suspect]
     Active Substance: ESOMEPRAZOLE MAGNESIUM
     Indication: GASTROOESOPHAGEAL REFLUX DISEASE
     Dosage: DOSE INCREASED
     Route: 048
  10. CALCIUM [Concomitant]
     Active Substance: CALCIUM
     Dosage: UNKNOWN
     Route: 065
  11. NEXIUM 24HR [Suspect]
     Active Substance: ESOMEPRAZOLE MAGNESIUM
     Indication: GASTROOESOPHAGEAL REFLUX DISEASE
     Route: 048
  12. ZYRTEC [Concomitant]
     Active Substance: CETIRIZINE HYDROCHLORIDE
     Indication: DRUG HYPERSENSITIVITY
     Route: 048
  13. ATORVASTATIN [Concomitant]
     Active Substance: ATORVASTATIN
     Indication: BLOOD CHOLESTEROL INCREASED
     Route: 048
  14. VITAMIN D [Concomitant]
     Active Substance: CHOLECALCIFEROL
     Dosage: UNKNOWN
     Route: 065
  15. NEXIUM [Suspect]
     Active Substance: ESOMEPRAZOLE MAGNESIUM
     Indication: GASTROOESOPHAGEAL REFLUX DISEASE
     Dosage: RESTARTED
     Route: 048
     Dates: start: 201806
  16. MIRALAX [Concomitant]
     Active Substance: POLYETHYLENE GLYCOL 3350
     Dosage: UNKNOWN
     Route: 065

REACTIONS (6)
  - Blood cholesterol increased [Unknown]
  - Ovarian cancer recurrent [Unknown]
  - Abdominal discomfort [Unknown]
  - Ovarian cancer [Not Recovered/Not Resolved]
  - Influenza [Not Recovered/Not Resolved]
  - Oesophageal stenosis [Not Recovered/Not Resolved]

NARRATIVE: CASE EVENT DATE: 2015
